FAERS Safety Report 9423771 (Version 1)
Quarter: 2013Q3

REPORT INFORMATION
  Report Type: Spontaneous
  Country: US (occurrence: US)
  Receive Date: 20130728
  Receipt Date: 20130728
  Transmission Date: 20140515
  Serious: No
  Sender: FDA-Public Use
  Company Number: US-009507513-1307USA011420

PATIENT
  Age: 44 Year
  Sex: Female

DRUGS (4)
  1. SINEMET [Suspect]
     Indication: AKATHISIA
     Dosage: UP TO SIX TABLETS/DAY
     Route: 048
  2. SINEMET [Suspect]
     Indication: HYPOKINESIA
     Dosage: UP TO SIX TABLETS/DAYUNK
  3. VALPROIC ACID [Concomitant]
     Indication: DEPRESSION
     Dosage: 250 MG DAILY
  4. VALPROIC ACID [Concomitant]
     Indication: AFFECT LABILITY

REACTIONS (2)
  - Dyskinesia [Recovered/Resolved]
  - Drug ineffective [Unknown]
